FAERS Safety Report 11685327 (Version 1)
Quarter: 2015Q4

REPORT INFORMATION
  Report Type: Spontaneous
  Country: US (occurrence: None)
  Receive Date: 20151029
  Receipt Date: 20151029
  Transmission Date: 20160304
  Serious: Yes (Disabling, Other)
  Sender: FDA-Public Use
  Company Number: None

PATIENT
  Age: 9 Year
  Sex: Male
  Weight: 24.95 kg

DRUGS (9)
  1. ABILIFY [Suspect]
     Active Substance: ARIPIPRAZOLE
     Indication: ANXIETY
     Dosage: HALF A TABLET
     Route: 048
     Dates: start: 20150731, end: 20150801
  2. CHEWABLE MULTIVITAMIN FOR CHILDREN [Concomitant]
  3. MELATONIN [Concomitant]
     Active Substance: MELATONIN
  4. STRATTERA [Concomitant]
     Active Substance: ATOMOXETINE HYDROCHLORIDE
  5. ABILIFY [Suspect]
     Active Substance: ARIPIPRAZOLE
     Indication: AFFECTIVE DISORDER
     Dosage: HALF A TABLET
     Route: 048
     Dates: start: 20150731, end: 20150801
  6. METHYLPHENIDATE CD [Concomitant]
     Active Substance: METHYLPHENIDATE HYDROCHLORIDE
  7. ABILIFY [Suspect]
     Active Substance: ARIPIPRAZOLE
     Indication: DEPRESSION
     Dosage: HALF A TABLET
     Route: 048
     Dates: start: 20150731, end: 20150801
  8. ZYRTEC [Concomitant]
     Active Substance: CETIRIZINE HYDROCHLORIDE
  9. FLUOXETINE [Concomitant]
     Active Substance: FLUOXETINE HYDROCHLORIDE

REACTIONS (6)
  - Muscle spasms [None]
  - Pain [None]
  - Seizure [None]
  - Muscle tightness [None]
  - Crying [None]
  - Bruxism [None]

NARRATIVE: CASE EVENT DATE: 20150803
